FAERS Safety Report 5076899-5 (Version None)
Quarter: 2006Q3

REPORT INFORMATION
  Report Type: 
  Country: None (occurrence: None)
  Receive Date: 20060810
  Receipt Date: 20060801
  Transmission Date: 20061208
  Serious: Yes (Hospitalization)
  Sender: FDA-Public Use
  Company Number: US-AVENTIS-200618170GDDC

PATIENT

DRUGS (3)
  1. DOCETAXEL [Suspect]
     Indication: SQUAMOUS CELL CARCINOMA
  2. ERBITUX [Suspect]
     Indication: SQUAMOUS CELL CARCINOMA
  3. RADIOTHERAPY [Suspect]
     Indication: SQUAMOUS CELL CARCINOMA
     Dates: start: 20060728

REACTIONS (4)
  - ELECTROLYTE IMBALANCE [None]
  - HYPOTENSION [None]
  - MUCOSAL INFLAMMATION [None]
  - PYREXIA [None]
